FAERS Safety Report 6677935-2 (Version None)
Quarter: 2010Q2

REPORT INFORMATION
  Report Type: 
  Country: None (occurrence: None)
  Receive Date: 20100412
  Receipt Date: 20100326
  Transmission Date: 20101027
  Serious: Yes (Other)
  Sender: FDA-Public Use
  Company Number: US-PURDUE-USA_2008_0031006

PATIENT
  Sex: Male

DRUGS (4)
  1. OXYCONTIN [Suspect]
     Indication: PAIN
     Dosage: UNK, SEE TEXT
  2. LYRICA [Concomitant]
     Indication: DRUG USE FOR UNKNOWN INDICATION
     Dosage: 75 MG, BID
  3. CYCLOBENZAPRINE [Concomitant]
     Dosage: 10 MG, PRN
  4. LUNESTA [Concomitant]
     Indication: SLEEP DISORDER THERAPY

REACTIONS (2)
  - INADEQUATE ANALGESIA [None]
  - SUICIDAL IDEATION [None]
